FAERS Safety Report 8983683 (Version 3)
Quarter: 2013Q1

REPORT INFORMATION
  Report Type: Report from Study
  Country: JP (occurrence: JP)
  Receive Date: 20121224
  Receipt Date: 20130319
  Transmission Date: 20140127
  Serious: Yes (Death, Disabling, Other)
  Sender: FDA-Public Use
  Company Number: JP-MERCK-1208JPN005636

PATIENT
  Age: 46 Year
  Sex: Male
  Weight: 94 kg

DRUGS (11)
  1. TEMODAL [Suspect]
     Indication: MALIGNANT GLIOMA
     Dosage: 75 MG/M2, QD
     Route: 041
     Dates: start: 20110411, end: 20110417
  2. TEMODAL [Suspect]
     Indication: MALIGNANT GLIOMA
     Dosage: 75 MG/M2, QD
     Route: 048
     Dates: start: 20110418, end: 20110522
  3. TEMODAL [Suspect]
     Dosage: 150 MG/M2, QD
     Route: 048
     Dates: start: 20110624, end: 20110628
  4. TAKEPRON [Concomitant]
     Dosage: UNK
     Route: 048
     Dates: end: 201109
  5. PREMINENT TABLETS [Concomitant]
     Dosage: UNK
     Route: 048
     Dates: end: 201109
  6. URINORM [Concomitant]
     Dosage: UNK
     Route: 048
     Dates: end: 201109
  7. NAUZELIN [Concomitant]
     Indication: PROPHYLAXIS
     Dosage: UNK
     Route: 048
     Dates: start: 20110316, end: 201109
  8. SELBEX [Concomitant]
     Dosage: UNK
     Route: 048
     Dates: end: 201109
  9. LENDORMIN [Concomitant]
     Dosage: UNK
     Route: 048
     Dates: end: 201109
  10. LOXONIN [Concomitant]
     Dosage: UNK
     Route: 048
     Dates: end: 201109
  11. MAGMITT [Concomitant]
     Dosage: UNK
     Route: 048
     Dates: end: 201109

REACTIONS (3)
  - Lymphocyte count decreased [Not Recovered/Not Resolved]
  - Lung carcinoma cell type unspecified stage IV [Fatal]
  - Nausea [Recovered/Resolved]
